FAERS Safety Report 5280437-1 (Version None)
Quarter: 2007Q1

REPORT INFORMATION
  Report Type: 
  Country: None (occurrence: None)
  Receive Date: 20061215
  Receipt Date: 20060427
  Transmission Date: 20070707
  Serious: Yes (Hospitalization)
  Sender: FDA-Public Use
  Company Number: HQWYE039828APR06

PATIENT
  Sex: Female

DRUGS (2)
  1. EFFEXOR XR [Suspect]
     Indication: MAJOR DEPRESSION
     Dosage: 37.5 MG 2X PER 1 DAY, ORAL
     Route: 048
     Dates: start: 20060421, end: 20060426
  2. HALCION [Concomitant]

REACTIONS (2)
  - CONVULSION [None]
  - HYPOKALAEMIA [None]
